FAERS Safety Report 9066838 (Version 5)
Quarter: 2015Q4

REPORT INFORMATION
  Report Type: Spontaneous
  Country: ZA (occurrence: ZA)
  Receive Date: 20130214
  Receipt Date: 20151130
  Transmission Date: 20160305
  Serious: Yes (Other)
  Sender: FDA-Public Use
  Company Number: ZA-GLAXOSMITHKLINE-B0867266A

PATIENT
  Sex: Male

DRUGS (4)
  1. MESALAZINE [Concomitant]
     Active Substance: MESALAMINE
     Indication: COLITIS
     Dosage: USED INTERMITTENTLY FOR MANY YEARS. USED ONLY WHEN SYMTPOMS EXPERIENCED
     Route: 065
  2. MODAFINIL. [Concomitant]
     Active Substance: MODAFINIL
     Dosage: USED FOR 18 MONTHS
     Route: 065
  3. WELLBUTRIN [Suspect]
     Active Substance: BUPROPION HYDROCHLORIDE
     Indication: DEPRESSION
     Dosage: 300 MG, QD
     Route: 065
  4. ESOMEPRAZOLE [Concomitant]
     Active Substance: ESOMEPRAZOLE
     Dosage: USED FOR 18 MONTHS
     Route: 065

REACTIONS (3)
  - Alopecia [Recovered/Resolved]
  - Nephrolithiasis [Recovering/Resolving]
  - Eyelid oedema [Recovered/Resolved]
